FAERS Safety Report 14999596 (Version 1)
Quarter: 2018Q2

REPORT INFORMATION
  Report Type: Spontaneous
  Country: IT (occurrence: IT)
  Receive Date: 20180612
  Receipt Date: 20180612
  Transmission Date: 20180711
  Serious: Yes (Hospitalization)
  Sender: FDA-Public Use
  Company Number: IT-CONCORDIA PHARMACEUTICALS INC.-E2B_00012415

PATIENT
  Age: 96 Year
  Sex: Female

DRUGS (6)
  1. LANOXIN [Suspect]
     Active Substance: DIGOXIN
     Indication: CARDIAC FAILURE
     Route: 048
     Dates: start: 20180101, end: 20180414
  2. LASIX [Concomitant]
     Active Substance: FUROSEMIDE
  3. TRIATEC HCT 5 MG + 25 MG COMPRESSE [Concomitant]
  4. SLOWMET [Concomitant]
     Active Substance: METFORMIN HYDROCHLORIDE
  5. PANTORC [Concomitant]
     Active Substance: PANTOPRAZOLE SODIUM
  6. TRAVATAN 40 MICROGRAMS/ML EYE DROPS, SOLUTION [Concomitant]

REACTIONS (2)
  - Asthenia [Unknown]
  - Bradycardia [Unknown]

NARRATIVE: CASE EVENT DATE: 20180415
